FAERS Safety Report 23422663 (Version 1)
Quarter: 2024Q1

REPORT INFORMATION
  Report Type: Spontaneous
  Country: GB (occurrence: GB)
  Receive Date: 20240119
  Receipt Date: 20240119
  Transmission Date: 20240410
  Serious: Yes (Other)
  Sender: FDA-Public Use
  Company Number: None

PATIENT
  Age: 71 Year

DRUGS (1)
  1. ALLOPURINOL [Suspect]
     Active Substance: ALLOPURINOL
     Indication: Product used for unknown indication
     Dosage: 100MG DAILY; ;
     Route: 065
     Dates: start: 20231128, end: 20240104

REACTIONS (1)
  - Oedema [Recovering/Resolving]

NARRATIVE: CASE EVENT DATE: 20231128
